FAERS Safety Report 6025418-5 (Version None)
Quarter: 2008Q4

REPORT INFORMATION
  Report Type: 
  Country: None (occurrence: None)
  Receive Date: 20081229
  Receipt Date: 20081229
  Transmission Date: 20090506
  Serious: Yes (Other)
  Sender: FDA-Public Use
  Company Number: None

PATIENT
  Sex: Female
  Weight: 52.1637 kg

DRUGS (1)
  1. PORTIA-21 [Suspect]
     Dosage: ONE PILL ONCE PER DAY PO
     Route: 048

REACTIONS (2)
  - ALOPECIA [None]
  - PRODUCT QUALITY ISSUE [None]
